FAERS Safety Report 18262596 (Version 1)
Quarter: 2020Q3

REPORT INFORMATION
  Report Type: Spontaneous
  Country: US (occurrence: US)
  Receive Date: 20200914
  Receipt Date: 20200914
  Transmission Date: 20201103
  Serious: No
  Sender: FDA-Public Use
  Company Number: US-JNJFOC-20200909170

PATIENT
  Sex: Female
  Weight: 61.74 kg

DRUGS (1)
  1. ULTRAM [Suspect]
     Active Substance: TRAMADOL HYDROCHLORIDE
     Indication: PAIN
     Dosage: TAKES IT 20 MINUTES BEFORE SHE IS UP AND TAKES 6 OR 4 TABLETS SOMETIMES; SERIAL NUMBER:100000075549
     Route: 048

REACTIONS (6)
  - Loss of personal independence in daily activities [Unknown]
  - Musculoskeletal stiffness [Unknown]
  - Cognitive disorder [Unknown]
  - Incorrect dose administered [Unknown]
  - Bedridden [Unknown]
  - Disturbance in attention [Unknown]
